FAERS Safety Report 18465295 (Version 1)
Quarter: 2020Q4

REPORT INFORMATION
  Report Type: Spontaneous
  Country: US (occurrence: US)
  Receive Date: 20201104
  Receipt Date: 20201104
  Transmission Date: 20210114
  Serious: No
  Sender: FDA-Public Use
  Company Number: US-PFIZER INC-2020427329

PATIENT
  Age: 30 Year
  Sex: Male

DRUGS (2)
  1. TOFACITINIB [Suspect]
     Active Substance: TOFACITINIB
     Dosage: UNK
     Dates: start: 201901
  2. TOFACITINIB [Suspect]
     Active Substance: TOFACITINIB
     Dosage: UNK (MAINTENANCE DOSE)
     Dates: start: 201905

REACTIONS (2)
  - Arthritis [Unknown]
  - Blood creatine phosphokinase increased [Unknown]

NARRATIVE: CASE EVENT DATE: 201908
